FAERS Safety Report 22812485 (Version 5)
Quarter: 2025Q4

REPORT INFORMATION
  Report Type: Report from Study
  Country: US (occurrence: US)
  Receive Date: 20230811
  Receipt Date: 20251010
  Transmission Date: 20260117
  Serious: No
  Sender: TAKEDA
  Company Number: US-TAKEDA-2023TUS077874

PATIENT
  Age: 40 Year
  Sex: Male

DRUGS (1)
  1. HUMAN IMMUNOGLOBULIN G\HYALURONIDASE RECOMBINANT HUMAN [Suspect]
     Active Substance: HUMAN IMMUNOGLOBULIN G\HYALURONIDASE (HUMAN RECOMBINANT)
     Indication: Product used for unknown indication
     Dosage: UNK

REACTIONS (5)
  - Feeling abnormal [Unknown]
  - Product dose omission issue [Unknown]
  - Product use issue [Unknown]
  - Insurance issue [Unknown]
  - Malaise [Unknown]

NARRATIVE: CASE EVENT DATE: 20230802
